FAERS Safety Report 12465337 (Version 6)
Quarter: 2016Q4

REPORT INFORMATION
  Report Type: Report from Study
  Country: NL (occurrence: NL)
  Receive Date: 20160614
  Receipt Date: 20161123
  Transmission Date: 20170207
  Serious: Yes (Hospitalization, Other)
  Sender: FDA-Public Use
  Company Number: NL-VERTEX PHARMACEUTICALS-2016-003678

PATIENT
  Age: 24 Year
  Sex: Female

DRUGS (15)
  1. MICROGYNON [Concomitant]
     Active Substance: ETHINYL ESTRADIOL\LEVONORGESTREL ACETATE
     Dosage: 1 DF, QD
  2. COLOBREATHE [Concomitant]
     Dosage: 1 DF, BID
  3. CREON [Concomitant]
     Active Substance: PANCRELIPASE AMYLASE\PANCRELIPASE LIPASE\PANCRELIPASE PROTEASE
     Route: 048
  4. TOBI [Concomitant]
     Active Substance: TOBRAMYCIN
     Dosage: 112 MG, BID
  5. ORKAMBI [Suspect]
     Active Substance: IVACAFTOR\LUMACAFTOR
     Dosage: HALF DOSE
     Route: 048
     Dates: start: 201608, end: 20161001
  6. DORNASE ALFA [Concomitant]
     Active Substance: DORNASE ALFA
     Dosage: 2.5 MG, BID
  7. ORKAMBI [Suspect]
     Active Substance: IVACAFTOR\LUMACAFTOR
     Indication: CYSTIC FIBROSIS
     Dosage: 400/250 MG, BID
     Route: 048
     Dates: start: 20160530, end: 201608
  8. FOSTER [Concomitant]
     Active Substance: BECLOMETHASONE\FORMOTEROL
     Dosage: 2 DF, BID
  9. AZITHROMYCINE [Concomitant]
     Active Substance: AZITHROMYCIN DIHYDRATE
     Dosage: 1 DF, MON, WED, FRI
  10. NATRIUM CHLORIDUM [Concomitant]
     Dosage: 7%, 4 ML, UNK
  11. ADEK [Concomitant]
     Dosage: 1 DF, QD
  12. NADROPARINE [Concomitant]
     Active Substance: NADROPARIN
     Dosage: 11400 IE, QD
  13. NATRIUM CHLORIDUM [Concomitant]
     Dosage: 0.9%, 10 ML, 6 TIMES DAILY
  14. TEMAZEPAM. [Concomitant]
     Active Substance: TEMAZEPAM
  15. PANTOPRAZOLE [Concomitant]
     Active Substance: PANTOPRAZOLE SODIUM
     Dosage: 40 MG, QD
     Route: 048

REACTIONS (4)
  - Drug ineffective [Unknown]
  - Cough [Recovered/Resolved]
  - Dyspnoea [Recovered/Resolved]
  - Infective pulmonary exacerbation of cystic fibrosis [Recovering/Resolving]

NARRATIVE: CASE EVENT DATE: 20160531
